FAERS Safety Report 4341673-1 (Version None)
Quarter: 2004Q2

REPORT INFORMATION
  Report Type: 
  Country: None (occurrence: None)
  Receive Date: 20040415
  Receipt Date: 20040407
  Transmission Date: 20050107
  Serious: No
  Sender: FDA-Public Use
  Company Number: 04H-163-0256369-00

PATIENT
  Sex: Female
  Weight: 3.45 kg

DRUGS (5)
  1. BUPIVACAINE HCL 0.25% INJECTION, USP (BUPIVACAINE HYDROCHLORIDE INJECT [Suspect]
     Indication: ANALGESIC EFFECT
     Dosage: 2.5 MG, ONCE, INTRA-UTERINE
     Route: 015
  2. BUPIVACAINE HCL 0.25% INJECTION, USP (BUPIVACAINE HYDROCHLORIDE INJECT [Suspect]
     Indication: DRUG EXPOSURE DURING PREGNANCY
     Dosage: 2.5 MG, ONCE, INTRA-UTERINE
     Route: 015
  3. FENTANYL [Suspect]
     Indication: ANALGESIC EFFECT
     Dosage: 5 MCG, ONCE, INTRA-UTERINE
     Route: 015
  4. RINGER-LACTATE SOLUTION ^FRESENIUS^ [Concomitant]
  5. SHOHL'S SOLUTION [Concomitant]

REACTIONS (4)
  - ANAESTHETIC COMPLICATION [None]
  - BRADYCARDIA FOETAL [None]
  - CAESAREAN SECTION [None]
  - MATERNAL DRUGS AFFECTING FOETUS [None]
